FAERS Safety Report 23302958 (Version 1)
Quarter: 2023Q4

REPORT INFORMATION
  Report Type: Spontaneous
  Country: US (occurrence: US)
  Receive Date: 20231215
  Receipt Date: 20231215
  Transmission Date: 20240110
  Serious: Yes (Hospitalization)
  Sender: FDA-Public Use
  Company Number: US-BIOVITRUM-2023-US-020559

PATIENT
  Age: 8 Month
  Sex: Female
  Weight: 6.39 kg

DRUGS (5)
  1. SYNAGIS [Suspect]
     Active Substance: PALIVIZUMAB
     Indication: Premature baby
     Dosage: INTO THE MUSCLE ONCE A MONTH?100 MG SDV/INJ PF 1 ML 1^S; SYNAGIS 50 MG SDV/INJ PF 0.5 ML 1^S
     Route: 030
  2. SYNAGIS [Suspect]
     Active Substance: PALIVIZUMAB
     Indication: Pulmonary hypertension
  3. SYNAGIS [Suspect]
     Active Substance: PALIVIZUMAB
     Indication: Retinopathy of prematurity
  4. EPINEPHRINE [Concomitant]
     Active Substance: EPINEPHRINE
     Indication: Product used for unknown indication
  5. INFANT VITAMIN D [Concomitant]
     Indication: Product used for unknown indication
     Dosage: 400 ML DROPS

REACTIONS (2)
  - Dyspnoea [Unknown]
  - Lip discolouration [Unknown]
